FAERS Safety Report 12299186 (Version 4)
Quarter: 2017Q3

REPORT INFORMATION
  Report Type: Report from Study
  Country: CA (occurrence: CA)
  Receive Date: 20160425
  Receipt Date: 20170830
  Transmission Date: 20171127
  Serious: Yes (Hospitalization, Other)
  Sender: FDA-Public Use
  Company Number: PHHY2016CA052514

PATIENT
  Sex: Male

DRUGS (4)
  1. EXJADE [Suspect]
     Active Substance: DEFERASIROX
     Dosage: 1250 MG, BID
     Route: 048
  2. EXJADE [Suspect]
     Active Substance: DEFERASIROX
     Dosage: 1250 MG, QD
     Route: 048
     Dates: start: 201207, end: 201704
  3. VITAMIN B12 [Concomitant]
     Active Substance: CYANOCOBALAMIN
     Indication: PRODUCT USED FOR UNKNOWN INDICATION
     Route: 065
  4. EXJADE [Suspect]
     Active Substance: DEFERASIROX
     Indication: MYELODYSPLASTIC SYNDROME
     Dosage: 1750 MG, QD
     Route: 048
     Dates: start: 2011

REACTIONS (16)
  - Haemoglobin decreased [Unknown]
  - Therapy non-responder [Unknown]
  - Fall [Unknown]
  - Pneumonia [Unknown]
  - Joint injury [Unknown]
  - Blood disorder [Unknown]
  - Abdominal distension [Not Recovered/Not Resolved]
  - Arthralgia [Unknown]
  - Hypotension [Unknown]
  - Infection [Unknown]
  - Flatulence [Not Recovered/Not Resolved]
  - Musculoskeletal discomfort [Unknown]
  - Limb injury [Unknown]
  - Abdominal pain [Unknown]
  - Serum ferritin increased [Unknown]
  - Diarrhoea [Unknown]

NARRATIVE: CASE EVENT DATE: 2017
